FAERS Safety Report 7455337-9 (Version None)
Quarter: 2011Q2

REPORT INFORMATION
  Report Type: 
  Country: None (occurrence: None)
  Receive Date: 20110503
  Receipt Date: 20110428
  Transmission Date: 20111010
  Serious: Yes (Death, Other)
  Sender: FDA-Public Use
  Company Number: US-ROXANE LABORATORIES, INC.-2011-RO-00581RO

PATIENT
  Age: 55 Year
  Sex: Male

DRUGS (3)
  1. METHADONE [Suspect]
     Indication: PAIN
     Dosage: 180 MG
     Dates: start: 20070518, end: 20081017
  2. LEVITRA [Suspect]
     Dates: start: 20060724, end: 20081017
  3. AMITRIPTYLINE [Suspect]
     Dates: start: 20050124, end: 20081017

REACTIONS (3)
  - ELECTROCARDIOGRAM QT PROLONGED [None]
  - SEPTIC SHOCK [None]
  - HYPERKALAEMIA [None]
